FAERS Safety Report 8562638-X (Version None)
Quarter: 2012Q3

REPORT INFORMATION
  Report Type: 
  Country: None (occurrence: None)
  Receive Date: 20120802
  Receipt Date: 20120712
  Transmission Date: 20120928
  Serious: No
  Sender: FDA-Public Use
  Company Number: US-AMGEN-USASP2012043660

PATIENT
  Age: 39 Year
  Sex: Female

DRUGS (1)
  1. ENBREL [Suspect]
     Indication: PSORIATIC ARTHROPATHY
     Dosage: 25 MG, QWK
     Dates: start: 20080327, end: 20120703

REACTIONS (5)
  - JOINT SWELLING [None]
  - ASTHMA [None]
  - FEELING HOT [None]
  - PRURITUS [None]
  - ERYTHEMA [None]
